FAERS Safety Report 4469686-X (Version None)
Quarter: 2004Q4

REPORT INFORMATION
  Report Type: 
  Country: None (occurrence: None)
  Receive Date: 20041005
  Receipt Date: 20040924
  Transmission Date: 20050328
  Serious: Yes (Hospitalization, Other)
  Sender: FDA-Public Use
  Company Number: DE-2004-032496

PATIENT
  Age: 55 Year
  Sex: Male

DRUGS (3)
  1. ULTRAVIST 300 [Suspect]
     Indication: COMPUTERISED TOMOGRAM
     Dosage: 100 ML, 1 DOSE; INTRAVENOUS
     Route: 042
     Dates: start: 20040915, end: 20040915
  2. PERITRAST (LYSINE AMIDOTRIZONATE) [Suspect]
     Dosage: 5 ML, 1 DOSE, ORAL
     Route: 048
     Dates: start: 20040915, end: 20040915
  3. ... [Concomitant]

REACTIONS (5)
  - CARDIOVASCULAR DISORDER [None]
  - CEREBROVASCULAR DISORDER [None]
  - HYPOAESTHESIA [None]
  - TREMOR [None]
  - URTICARIA [None]
